FAERS Safety Report 5155528-6 (Version None)
Quarter: 2006Q4

REPORT INFORMATION
  Report Type: 
  Country: None (occurrence: None)
  Receive Date: 20061114
  Receipt Date: 20061030
  Transmission Date: 20070319
  Serious: Yes (Death)
  Sender: FDA-Public Use
  Company Number: S06-USA-04279-01

PATIENT
  Age: 11 Year
  Sex: Female
  Weight: 47 kg

DRUGS (8)
  1. LEXAPRO [Suspect]
     Indication: DEPRESSION
     Dosage: 5 MG QD PO
     Route: 048
     Dates: start: 20040416, end: 20040429
  2. LEXAPRO [Suspect]
     Indication: OPPOSITIONAL DEFIANT DISORDER
     Dosage: 5 MG QD PO
     Route: 048
     Dates: start: 20040416, end: 20040429
  3. LEXAPRO [Suspect]
     Indication: DEPRESSION
     Dosage: 10 MG QD PO
     Route: 048
     Dates: start: 20040430, end: 20040101
  4. LEXAPRO [Suspect]
     Indication: OPPOSITIONAL DEFIANT DISORDER
     Dosage: 10 MG QD PO
     Route: 048
     Dates: start: 20040430, end: 20040101
  5. LEXAPRO [Suspect]
     Indication: DEPRESSION
     Dosage: 10 MG QD PO
     Route: 048
     Dates: start: 20040610, end: 20040722
  6. LEXAPRO [Suspect]
     Indication: OPPOSITIONAL DEFIANT DISORDER
     Dosage: 10 MG QD PO
     Route: 048
     Dates: start: 20040610, end: 20040722
  7. CLONIDINE [Concomitant]
  8. SINGULAIR [Concomitant]

REACTIONS (9)
  - AGITATION [None]
  - COMPLETED SUICIDE [None]
  - CONDITION AGGRAVATED [None]
  - DEPRESSION [None]
  - EXCORIATION [None]
  - INJURY ASPHYXIATION [None]
  - IRRITABILITY [None]
  - SUICIDAL IDEATION [None]
  - VOMITING [None]
